FAERS Safety Report 9602003 (Version 2)
Quarter: 2013Q4

REPORT INFORMATION
  Report Type: Spontaneous
  Country: IT (occurrence: IT)
  Receive Date: 20131007
  Receipt Date: 20131118
  Transmission Date: 20140711
  Serious: Yes (Life-Threatening)
  Sender: FDA-Public Use
  Company Number: PHHY2013IT111174

PATIENT
  Age: 29 Year
  Sex: Female

DRUGS (3)
  1. CLOZAPINE [Suspect]
     Dosage: UNK
     Route: 048
     Dates: start: 20130618, end: 20130618
  2. ZIPRASIDONE [Suspect]
     Dosage: UNK
     Route: 048
     Dates: start: 20130618, end: 20130618
  3. ESCITALOPRAM [Concomitant]
     Dosage: UNK

REACTIONS (4)
  - Anuria [Recovered/Resolved]
  - Respiratory failure [Recovered/Resolved]
  - Drug abuse [Recovered/Resolved]
  - Renal failure acute [Recovered/Resolved]
